FAERS Safety Report 13669158 (Version 1)
Quarter: 2017Q2

REPORT INFORMATION
  Report Type: Report from Study
  Country: US (occurrence: US)
  Receive Date: 20170620
  Receipt Date: 20170620
  Transmission Date: 20170830
  Serious: Yes (Death, Hospitalization)
  Sender: FDA-Public Use
  Company Number: US-TORRENT-00002938

PATIENT
  Age: 23 Year
  Sex: Male

DRUGS (3)
  1. DULOXETINE HYDROCHLORIDE. [Suspect]
     Active Substance: DULOXETINE HYDROCHLORIDE
  2. HEROIN [Suspect]
     Active Substance: DIAMORPHINE
  3. OXYCODONE HYDROCHLORIDE. [Suspect]
     Active Substance: OXYCODONE HYDROCHLORIDE

REACTIONS (2)
  - Toxicity to various agents [Fatal]
  - Drug use disorder [Fatal]
